FAERS Safety Report 9450363 (Version 1)
Quarter: 2013Q3

REPORT INFORMATION
  Report Type: Spontaneous
  Country: US (occurrence: None)
  Receive Date: 20130809
  Receipt Date: 20130809
  Transmission Date: 20140515
  Serious: Yes (Hospitalization)
  Sender: FDA-Public Use
  Company Number: None

PATIENT
  Age: 75 Year
  Sex: Female

DRUGS (1)
  1. CALCIUM GLUCONATE [Suspect]
     Dosage: 2GM IN 100 MLS NS -- INTRAVENOUS
     Route: 042
     Dates: start: 20130731, end: 20130731

REACTIONS (2)
  - Product quality issue [None]
  - Culture positive [None]
